FAERS Safety Report 23160320 (Version 1)
Quarter: 2023Q4

REPORT INFORMATION
  Report Type: Spontaneous
  Country: US (occurrence: US)
  Receive Date: 20231108
  Receipt Date: 20231108
  Transmission Date: 20240110
  Serious: No
  Sender: FDA-Public Use
  Company Number: US-APIL-2312726US

PATIENT
  Sex: Female

DRUGS (1)
  1. LINZESS [Suspect]
     Active Substance: LINACLOTIDE
     Indication: Constipation
     Dosage: START DATE TEXT: ABOUT THREE TO FOUR MONTHS AGO
     Route: 048

REACTIONS (4)
  - Abdominal discomfort [Unknown]
  - Dehydration [Unknown]
  - Headache [Unknown]
  - Diarrhoea [Unknown]
